FAERS Safety Report 12237369 (Version 3)
Quarter: 2020Q1

REPORT INFORMATION
  Report Type: Spontaneous
  Country: TR (occurrence: US)
  Receive Date: 20160405
  Receipt Date: 20200211
  Transmission Date: 20200409
  Serious: Yes (Hospitalization, Other)
  Sender: FDA-Public Use
  Company Number: US-LUPIN PHARMACEUTICALS INC.-2016-01272

PATIENT
  Age: 33 Year
  Sex: Female

DRUGS (2)
  1. DOXYCYCLINE. [Suspect]
     Active Substance: DOXYCYCLINE
     Indication: VAGINAL INFECTION
     Dosage: 500 MILLIGRAM, BID
     Route: 065
  2. ORNIDAZOLE [Concomitant]
     Active Substance: ORNIDAZOLE
     Indication: VAGINAL INFECTION
     Dosage: 500 MILLIGRAM, BID
     Route: 065

REACTIONS (1)
  - Pancreatitis [Recovered/Resolved]
